FAERS Safety Report 14339634 (Version 1)
Quarter: 2017Q4

REPORT INFORMATION
  Report Type: Spontaneous
  Country: DE (occurrence: DE)
  Receive Date: 20171230
  Receipt Date: 20171230
  Transmission Date: 20180321
  Serious: Yes (Other)
  Sender: FDA-Public Use
  Company Number: DE-GLENMARK PHARMACEUTICALS-2017GMK029991

PATIENT

DRUGS (7)
  1. TILIDINE [Concomitant]
     Active Substance: TILIDINE
     Indication: NASOPHARYNGITIS
     Dosage: UNK
     Route: 065
     Dates: start: 201501
  2. GRIPPOSTAD C [Concomitant]
     Indication: NASOPHARYNGITIS
     Dosage: UNK
     Route: 065
  3. OMEPRAZOLE. [Suspect]
     Active Substance: OMEPRAZOLE
     Dosage: ()
     Route: 065
     Dates: start: 201501
  4. GRIPPOSTAD C [Concomitant]
     Dosage: ()
     Route: 065
     Dates: start: 201501
  5. PANTOPRAZOLE [Suspect]
     Active Substance: PANTOPRAZOLE
     Indication: PRODUCT USED FOR UNKNOWN INDICATION
     Dosage: UNK
     Route: 065
     Dates: start: 201501
  6. OMEPRAZOLE. [Suspect]
     Active Substance: OMEPRAZOLE
     Indication: NASOPHARYNGITIS
     Dosage: UNK
     Route: 065
  7. TILIDINE [Concomitant]
     Active Substance: TILIDINE
     Dosage: ()
     Route: 065
     Dates: start: 201501

REACTIONS (5)
  - Skin lesion [Unknown]
  - Pruritus [Unknown]
  - Type I hypersensitivity [Unknown]
  - Dyspnoea [Unknown]
  - Cardiovascular disorder [Unknown]

NARRATIVE: CASE EVENT DATE: 201501
